FAERS Safety Report 8122910-4 (Version None)
Quarter: 2012Q1

REPORT INFORMATION
  Report Type: 
  Country: None (occurrence: None)
  Receive Date: 20120208
  Receipt Date: 20120129
  Transmission Date: 20120608
  Serious: Yes (Hospitalization, Other)
  Sender: FDA-Public Use
  Company Number: PT-VERTEX PHARMACEUTICALS INC.-000000000000000149

PATIENT
  Sex: Female

DRUGS (3)
  1. RIBAVIRIN [Concomitant]
     Indication: HEPATIC CIRRHOSIS
  2. INCIVO (TELAPREVIR) [Suspect]
     Indication: HEPATIC CIRRHOSIS
     Dosage: DOSAGE FORM: TABLET
     Route: 048
  3. PEGINTERFERON ALFA-2A [Concomitant]
     Indication: HEPATIC CIRRHOSIS

REACTIONS (7)
  - OFF LABEL USE [None]
  - TOXIC SKIN ERUPTION [None]
  - ERYTHEMA [None]
  - CLONIC CONVULSION [None]
  - EYELID OEDEMA [None]
  - SYNCOPE [None]
  - RASH [None]
